FAERS Safety Report 17236062 (Version 1)
Quarter: 2020Q1

REPORT INFORMATION
  Report Type: Spontaneous
  Country: DE (occurrence: DE)
  Receive Date: 20200106
  Receipt Date: 20200106
  Transmission Date: 20200409
  Serious: Yes (Other)
  Sender: FDA-Public Use
  Company Number: DE-MYLANLABS-2019M1132045

PATIENT
  Age: 35 Year
  Sex: Female
  Weight: 58 kg

DRUGS (8)
  1. SEREVENT DISKUS [Concomitant]
     Active Substance: SALMETEROL XINAFOATE
     Indication: ASTHMA
     Dosage: 100 [?G/D (BIS 50 ?G/D, NACH BEDARF) ]
     Route: 055
     Dates: start: 20181004, end: 20190409
  2. FAMENITA [Concomitant]
     Active Substance: PROGESTERONE
     Indication: PROPHYLAXIS OF ABORTION
     Dosage: 100 [MG/D ]
     Route: 048
     Dates: start: 20180619, end: 20180810
  3. ALVESCO [Suspect]
     Active Substance: CICLESONIDE
     Indication: ASTHMA
     Dosage: 160 MICROGRAM, QD, 160 [?G/D (1X/D, ABENDS) ]
     Route: 055
     Dates: start: 20180619, end: 20180814
  4. VIANI [Concomitant]
     Active Substance: FLUTICASONE PROPIONATE\SALMETEROL XINAFOATE
     Indication: ASTHMA
     Dosage: UNK
     Route: 055
     Dates: start: 20180619, end: 20180808
  5. SALBUHEXAL                         /00139501/ [Concomitant]
     Indication: ASTHMA
     Dosage: IF NEEDED.
     Route: 055
  6. NOVOPULMON 400 NOVOLIZER, PULVER ZUR INHALATION [Suspect]
     Active Substance: BUDESONIDE
     Indication: ASTHMA
     Dosage: 1.6 [MG/D (BIS 0.8 MG/D) ]
     Route: 055
     Dates: start: 20180815, end: 20190409
  7. L-THYROX HEXAL [Concomitant]
     Active Substance: LEVOTHYROXINE SODIUM
     Indication: HYPOTHYROIDISM
     Dosage: 37.5 [?G/D (1.5 TABL.) ]
     Route: 048
     Dates: start: 20180619, end: 20190409
  8. AERODUR [Concomitant]
     Indication: ASTHMA
     Dosage: IF NEEDED
     Route: 055

REACTIONS (3)
  - Amniotic fluid volume increased [Recovered/Resolved]
  - Maternal exposure during pregnancy [Unknown]
  - Gestational diabetes [Recovered/Resolved]
